FAERS Safety Report 14204254 (Version 2)
Quarter: 2018Q1

REPORT INFORMATION
  Report Type: Spontaneous
  Country: US (occurrence: US)
  Receive Date: 20171120
  Receipt Date: 20180102
  Transmission Date: 20180508
  Serious: Yes (Other)
  Sender: FDA-Public Use
  Company Number: US-ELI_LILLY_AND_COMPANY-US201711002973

PATIENT
  Sex: Male
  Weight: 27.5 kg

DRUGS (1)
  1. HUMATROPE [Suspect]
     Active Substance: SOMATROPIN
     Indication: GROWTH HORMONE DEFICIENCY
     Dosage: 0.7 MG, DAILY
     Route: 065
     Dates: start: 201512, end: 20171116

REACTIONS (3)
  - Aggression [Unknown]
  - Suicidal ideation [Recovering/Resolving]
  - Psychomotor hyperactivity [Unknown]
